FAERS Safety Report 7387016-0 (Version None)
Quarter: 2011Q1

REPORT INFORMATION
  Report Type: 
  Country: None (occurrence: None)
  Receive Date: 20110331
  Receipt Date: 20110321
  Transmission Date: 20110831
  Serious: Yes (Death, Other)
  Sender: FDA-Public Use
  Company Number: NL-ABBOTT-11P-114-0713776-00

PATIENT
  Age: 26 Year
  Sex: Female

DRUGS (10)
  1. VANCOMYCIN [Concomitant]
     Indication: STAPHYLOCOCCAL BACTERAEMIA
  2. FLOXACILLIN SODIUM [Concomitant]
     Indication: PRODUCT USED FOR UNKNOWN INDICATION
  3. PLATELETS [Concomitant]
     Indication: APLASTIC ANAEMIA
     Dosage: 310 ML OF 340 X10**9 PLATELETS TWICE/WEEK
  4. IMIPENEM [Concomitant]
     Indication: PRODUCT USED FOR UNKNOWN INDICATION
  5. CLAVULANATE POTASSIUM [Concomitant]
     Indication: INTRAUTERINE INFECTION
     Route: 042
  6. CYCLOSPORINE [Suspect]
     Indication: APLASTIC ANAEMIA
  7. METHYLPREDNISOLONE ACETATE [Suspect]
     Indication: APLASTIC ANAEMIA
  8. MEROPENEM [Concomitant]
     Indication: STAPHYLOCOCCAL BACTERAEMIA
  9. BLOOD CELLS, PACKED HUMAN [Concomitant]
     Indication: APLASTIC ANAEMIA
     Dosage: 270 ML OF 0.57L/L HT TWICE A WEEK
  10. AMOXICILLIN [Concomitant]
     Indication: INTRAUTERINE INFECTION
     Route: 042

REACTIONS (6)
  - THROMBOCYTOPENIA [None]
  - NO THERAPEUTIC RESPONSE [None]
  - CEREBRAL INFARCTION [None]
  - NEUTROPENIA [None]
  - CEREBRAL HAEMORRHAGE [None]
  - SEPSIS [None]
